FAERS Safety Report 8973190 (Version 1)
Quarter: 2012Q4

REPORT INFORMATION
  Report Type: 
  Country: CA (occurrence: CA)
  Receive Date: 20121218
  Receipt Date: 20121218
  Transmission Date: 20130627
  Serious: Yes (Hospitalization)
  Sender: FDA-Public Use
  Company Number: CA-ROCHE-1170365

PATIENT
  Age: 72 Year
  Sex: Female

DRUGS (2)
  1. XELODA [Suspect]
     Indication: COLON CANCER STAGE III
     Route: 048
     Dates: start: 20121102, end: 20121102
  2. OXALIPLATIN [Concomitant]
     Indication: COLON CANCER STAGE III
     Route: 048
     Dates: start: 20121102, end: 20121102

REACTIONS (1)
  - Arterial thrombosis [Recovering/Resolving]
